FAERS Safety Report 23271741 (Version 1)
Quarter: 2023Q4

REPORT INFORMATION
  Report Type: Spontaneous
  Country: CN (occurrence: CN)
  Receive Date: 20231207
  Receipt Date: 20231207
  Transmission Date: 20240109
  Serious: Yes (Other)
  Sender: FDA-Public Use
  Company Number: CN-PFIZER INC-PV202300197069

PATIENT
  Age: 47 Year
  Sex: Male
  Weight: 90 kg

DRUGS (3)
  1. TIGECYCLINE [Suspect]
     Active Substance: TIGECYCLINE
     Indication: Anti-infective therapy
     Dosage: 100 MG, 1X/DAY
     Route: 041
     Dates: start: 20231113, end: 20231113
  2. TIGECYCLINE [Suspect]
     Active Substance: TIGECYCLINE
     Dosage: 50 MG, 2X/DAY
     Route: 041
     Dates: start: 20231113, end: 20231115
  3. TIGECYCLINE [Suspect]
     Active Substance: TIGECYCLINE
     Dosage: 100 MG, 2X/DAY
     Route: 041
     Dates: start: 20231116, end: 20231122

REACTIONS (3)
  - Coagulopathy [Recovering/Resolving]
  - Post procedural haemorrhage [Recovering/Resolving]
  - Off label use [Unknown]

NARRATIVE: CASE EVENT DATE: 20231116
